FAERS Safety Report 21858094 (Version 1)
Quarter: 2023Q1

REPORT INFORMATION
  Report Type: Spontaneous
  Country: GB (occurrence: GB)
  Receive Date: 20230113
  Receipt Date: 20230113
  Transmission Date: 20230418
  Serious: Yes (Death, Hospitalization, Other)
  Sender: FDA-Public Use
  Company Number: GB-EXELIXIS-CABO-23059620

PATIENT
  Age: 57 Year
  Sex: Male

DRUGS (6)
  1. CABOMETYX [Suspect]
     Active Substance: CABOZANTINIB S-MALATE
     Indication: Papillary renal cell carcinoma
     Dosage: 60 MG
     Dates: start: 20200403
  2. CABOMETYX [Suspect]
     Active Substance: CABOZANTINIB S-MALATE
     Dosage: 40 MG
     Dates: start: 202011
  3. CABOMETYX [Suspect]
     Active Substance: CABOZANTINIB S-MALATE
     Dosage: 40 MG
     Dates: start: 202101
  4. CABOMETYX [Suspect]
     Active Substance: CABOZANTINIB S-MALATE
     Dosage: 20 MG
     Dates: start: 202104
  5. LENVATINIB [Suspect]
     Active Substance: LENVATINIB
     Indication: Papillary renal cell carcinoma
     Dosage: UNK
     Dates: start: 202107
  6. EVEROLIMUS [Suspect]
     Active Substance: EVEROLIMUS
     Indication: Papillary renal cell carcinoma
     Dosage: UNK
     Dates: start: 202107, end: 202111

REACTIONS (15)
  - Lymphadenopathy [Unknown]
  - Death [Fatal]
  - Post procedural complication [Unknown]
  - Lymphatic fistula [Unknown]
  - Dysphagia [Recovering/Resolving]
  - Oropharyngeal pain [Unknown]
  - Balance disorder [Unknown]
  - Abdominal discomfort [Unknown]
  - Hair colour changes [Unknown]
  - Dysphonia [Not Recovered/Not Resolved]
  - Mucosal inflammation [Recovering/Resolving]
  - Cough [Unknown]
  - Nausea [Unknown]
  - Malignant neoplasm progression [Unknown]
  - Metastases to liver [Unknown]

NARRATIVE: CASE EVENT DATE: 20201101
